FAERS Safety Report 8513001-9 (Version None)
Quarter: 2012Q3

REPORT INFORMATION
  Report Type: 
  Country: None (occurrence: None)
  Receive Date: 20120705
  Receipt Date: 20120620
  Transmission Date: 20120928
  Serious: Yes (Hospitalization)
  Sender: FDA-Public Use
  Company Number: 2012-00963

PATIENT
  Age: 60 Year
  Sex: Female
  Weight: 76.2 kg

DRUGS (7)
  1. PREGABALIN [Suspect]
     Indication: PRODUCT USED FOR UNKNOWN INDICATION
     Dosage: 100 MG (50 MG,2 IN 1 D),ORAL
     Route: 048
  2. CLOBAZAM [Concomitant]
  3. ACETAMINOPHEN AND CODEINE PHOSPHATE [Concomitant]
  4. LANSOPRAZOLE [Concomitant]
  5. CLARITHROYCIN [Concomitant]
  6. VALPROIC ACID [Suspect]
     Indication: EPILEPSY
     Dosage: 2 GM (1 GM,2 IN 1 D),ORAL
     Route: 048
  7. LEVETIRACETAM [Suspect]
     Indication: PRODUCT USED FOR UNKNOWN INDICATION
     Dosage: 1500 MG (750 MG,2 IN 1 D),ORAL
     Route: 048

REACTIONS (4)
  - ABDOMINAL DISTENSION [None]
  - ABDOMINAL PAIN [None]
  - PANCREATITIS [None]
  - TENDERNESS [None]
